FAERS Safety Report 4579531-X (Version None)
Quarter: 2005Q1

REPORT INFORMATION
  Report Type: 
  Country: None (occurrence: None)
  Receive Date: 20050210
  Receipt Date: 20050131
  Transmission Date: 20050727
  Serious: Yes (Hospitalization)
  Sender: FDA-Public Use
  Company Number: 2005023117

PATIENT
  Sex: Male

DRUGS (1)
  1. DRAMAMINE [Suspect]
     Indication: OVERDOSE
     Dosage: 24 PILLS, AT ONCE,  ORAL
     Route: 048
     Dates: start: 20050131, end: 20050131

REACTIONS (2)
  - CARDIAC DISORDER [None]
  - HALLUCINATION, VISUAL [None]
